FAERS Safety Report 9584237 (Version 1)
Quarter: 2013Q4

REPORT INFORMATION
  Report Type: Spontaneous
  Country: US (occurrence: US)
  Receive Date: 20131002
  Receipt Date: 20131002
  Transmission Date: 20140711
  Serious: No
  Sender: FDA-Public Use
  Company Number: US-AMGEN-USASP2013051679

PATIENT
  Age: 27 Year
  Sex: Female

DRUGS (6)
  1. ENBREL [Suspect]
     Indication: RHEUMATOID ARTHRITIS
     Dosage: 50 MG, UNK
     Route: 065
     Dates: start: 20130715
  2. SYNTHROID [Concomitant]
     Dosage: 150 MUG, UNK
  3. VITAMIN B12                        /00056201/ [Concomitant]
     Dosage: 1000 MUG, UNK
  4. TERCONAZOLE [Concomitant]
     Dosage: 20 G, UNK
  5. SULINDAC [Concomitant]
     Dosage: 200 MG, UNK
  6. HYDROCORTISONE [Concomitant]
     Dosage: UNK

REACTIONS (3)
  - Injection site erythema [Unknown]
  - Injection site pruritus [Unknown]
  - Injection site rash [Unknown]
